FAERS Safety Report 14147047 (Version 2)
Quarter: 2018Q2

REPORT INFORMATION
  Report Type: Report from Study
  Country: CA (occurrence: CA)
  Receive Date: 20171101
  Receipt Date: 20180530
  Transmission Date: 20180711
  Serious: Yes (Other)
  Sender: FDA-Public Use
  Company Number: CA-ROCHE-1789381

PATIENT
  Age: 67 Year
  Sex: Male

DRUGS (9)
  1. PARIET [Concomitant]
     Active Substance: RABEPRAZOLE SODIUM
  2. MESTINON [Concomitant]
     Active Substance: PYRIDOSTIGMINE BROMIDE
     Dosage: 60 MG TWICE A DAY AND  180 MG AT BE TIME
     Route: 065
  3. NAPROXEN. [Concomitant]
     Active Substance: NAPROXEN
     Route: 065
  4. CELLCEPT [Suspect]
     Active Substance: MYCOPHENOLATE MOFETIL\MYCOPHENOLATE MOFETIL HYDROCHLORIDE
     Indication: MYASTHENIA GRAVIS
     Route: 065
  5. IMURAN [Suspect]
     Active Substance: AZATHIOPRINE
     Indication: PRODUCT USED FOR UNKNOWN INDICATION
     Route: 065
  6. PANTOPRAZOLE [Concomitant]
     Active Substance: PANTOPRAZOLE
  7. VIAGRA [Concomitant]
     Active Substance: SILDENAFIL CITRATE
  8. RITUXAN [Suspect]
     Active Substance: RITUXIMAB
     Indication: MYASTHENIA GRAVIS
     Route: 042
     Dates: start: 20170406
  9. PREDNISONE. [Suspect]
     Active Substance: PREDNISONE
     Indication: PRODUCT USED FOR UNKNOWN INDICATION
     Route: 065

REACTIONS (33)
  - Saccadic eye movement [Recovering/Resolving]
  - Hyperkalaemia [Unknown]
  - Gastrointestinal disorder [Unknown]
  - Joint range of motion decreased [Unknown]
  - Polycythaemia [Unknown]
  - Hallucination [Unknown]
  - Neuropathy peripheral [Unknown]
  - Peripheral sensory neuropathy [Unknown]
  - Back pain [Unknown]
  - Tinel^s sign [Unknown]
  - Demyelinating polyneuropathy [Unknown]
  - Drug ineffective [Unknown]
  - White blood cell count decreased [Unknown]
  - Sensory disturbance [Recovered/Resolved]
  - Eye movement disorder [Recovering/Resolving]
  - White blood cell count increased [Unknown]
  - Neutrophil count increased [Unknown]
  - Drug intolerance [Unknown]
  - Paraesthesia [Unknown]
  - Eyelid ptosis [Not Recovered/Not Resolved]
  - Polymyalgia rheumatica [Recovering/Resolving]
  - Arthralgia [Not Recovered/Not Resolved]
  - Therapy non-responder [Unknown]
  - Weight decreased [Unknown]
  - Neuropathy peripheral [Unknown]
  - Sensory disturbance [Unknown]
  - Diplopia [Unknown]
  - Eyelid disorder [Recovering/Resolving]
  - Musculoskeletal stiffness [Recovering/Resolving]
  - Blood potassium increased [Recovered/Resolved]
  - Ocular myasthenia [Unknown]
  - Hepatic enzyme increased [Unknown]
  - Platelet count increased [Unknown]

NARRATIVE: CASE EVENT DATE: 2018
